FAERS Safety Report 19935913 (Version 1)
Quarter: 2021Q4

REPORT INFORMATION
  Report Type: Spontaneous
  Country: AT (occurrence: AT)
  Receive Date: 20211008
  Receipt Date: 20211008
  Transmission Date: 20220303
  Serious: Yes (Other)
  Sender: FDA-Public Use
  Company Number: None

PATIENT
  Age: 46 Year
  Sex: Female

DRUGS (1)
  1. DEXAMETHASONE [Suspect]
     Active Substance: DEXAMETHASONE
     Dates: start: 20191230

REACTIONS (16)
  - Cushing^s syndrome [Recovered/Resolved]
  - Dry mouth [Recovered/Resolved]
  - Ageusia [Recovered/Resolved]
  - Insomnia [Recovered/Resolved]
  - Headache [Recovered/Resolved]
  - Blood pressure fluctuation [Recovered/Resolved]
  - Skin disorder [Recovered/Resolved]
  - Weight increased [Recovered/Resolved]
  - Conjunctivitis [Recovered/Resolved]
  - Oedema peripheral [Recovered/Resolved]
  - Extrasystoles [Recovered/Resolved]
  - Acne [Recovered/Resolved]
  - Muscle atrophy [Recovered/Resolved]
  - Vulval disorder [Recovered/Resolved]
  - Purulence [Recovered/Resolved]
  - Dyspnoea [Recovered/Resolved]

NARRATIVE: CASE EVENT DATE: 20200101
